FAERS Safety Report 9167737 (Version 1)
Quarter: 2013Q1

REPORT INFORMATION
  Report Type: Spontaneous
  Country: US (occurrence: None)
  Receive Date: 20130304
  Receipt Date: 20130304
  Transmission Date: 20140127
  Serious: Yes (Hospitalization)
  Sender: FDA-Public Use
  Company Number: VAL_01435_2013

PATIENT
  Age: 51 Year
  Sex: Female

DRUGS (2)
  1. CALCITRIOL [Suspect]
     Indication: CONGENITAL HYPOPARATHYROIDISM
  2. CALCIUM CARBONATE [Suspect]

REACTIONS (4)
  - Milk-alkali syndrome [None]
  - Metabolic alkalosis [None]
  - Renal failure acute [None]
  - Sarcoidosis [None]
